FAERS Safety Report 6073808-7 (Version None)
Quarter: 2009Q1

REPORT INFORMATION
  Report Type: 
  Country: None (occurrence: None)
  Receive Date: 20090211
  Receipt Date: 20090202
  Transmission Date: 20090719
  Serious: Yes (Hospitalization)
  Sender: FDA-Public Use
  Company Number: US-BIOGENIDEC-2009BI003847

PATIENT
  Age: 61 Year
  Sex: Male

DRUGS (3)
  1. AVONEX [Suspect]
     Indication: MULTIPLE SCLEROSIS
     Route: 030
     Dates: end: 20070324
  2. AVONEX [Suspect]
     Route: 030
     Dates: start: 20080601, end: 20080723
  3. AVONEX [Suspect]
     Route: 030
     Dates: end: 20081021

REACTIONS (2)
  - DYSURIA [None]
  - LOWER LIMB FRACTURE [None]
